FAERS Safety Report 9311015 (Version 1)
Quarter: 2013Q2

REPORT INFORMATION
  Report Type: Spontaneous
  Country: ES (occurrence: ES)
  Receive Date: 20130528
  Receipt Date: 20130528
  Transmission Date: 20140414
  Serious: Yes (Other)
  Sender: FDA-Public Use
  Company Number: ES-ELI_LILLY_AND_COMPANY-ES201305005223

PATIENT
  Sex: Female

DRUGS (1)
  1. STRATTERA [Suspect]
     Indication: ATTENTION DEFICIT/HYPERACTIVITY DISORDER
     Dosage: 18 MG, QD
     Route: 048
     Dates: start: 20130409, end: 20130505

REACTIONS (7)
  - Syncope [Unknown]
  - Dizziness [Unknown]
  - Malaise [Unknown]
  - Nightmare [Unknown]
  - Pallor [Unknown]
  - Disturbance in attention [Unknown]
  - Dyslexia [Unknown]
